FAERS Safety Report 26218731 (Version 1)
Quarter: 2025Q4

REPORT INFORMATION
  Report Type: Spontaneous
  Country: US (occurrence: US)
  Receive Date: 20251231
  Receipt Date: 20251231
  Transmission Date: 20260118
  Serious: No
  Sender: ROCHE
  Company Number: US-ROCHE-10000465071

PATIENT
  Age: 37 Year
  Sex: Female
  Weight: 68.03 kg

DRUGS (6)
  1. XOFLUZA [Suspect]
     Active Substance: BALOXAVIR MARBOXIL
     Indication: Infection
     Dosage: DEFECT QUANTITY: 1
     Route: 048
     Dates: start: 20251218
  2. XOFLUZA [Suspect]
     Active Substance: BALOXAVIR MARBOXIL
     Indication: Influenza A virus test positive
  3. XOFLUZA [Suspect]
     Active Substance: BALOXAVIR MARBOXIL
     Indication: Immunisation
  4. XOFLUZA [Suspect]
     Active Substance: BALOXAVIR MARBOXIL
     Indication: Immunisation
  5. XOFLUZA [Suspect]
     Active Substance: BALOXAVIR MARBOXIL
     Indication: Antiviral prophylaxis
  6. IBUPROFEN [Concomitant]
     Active Substance: IBUPROFEN
     Indication: Influenza A virus test positive
     Dosage: TAKE 4 200MG TABLETS FOR A TOTAL OF 800MG
     Route: 048

REACTIONS (2)
  - Product packaging issue [Unknown]
  - No adverse event [Unknown]

NARRATIVE: CASE EVENT DATE: 20251218
